FAERS Safety Report 22518127 (Version 1)
Quarter: 2023Q2

REPORT INFORMATION
  Report Type: Spontaneous
  Country: US (occurrence: US)
  Receive Date: 20230605
  Receipt Date: 20230605
  Transmission Date: 20230721
  Serious: Yes (Other)
  Sender: FDA-Public Use
  Company Number: US-SA-SAC20230602000122

PATIENT
  Age: 41 Year
  Sex: Male
  Weight: 99.7 kg

DRUGS (9)
  1. DUPIXENT [Suspect]
     Active Substance: DUPILUMAB
     Indication: Nasal polyps
     Dosage: 300 MG QOW
     Route: 058
     Dates: start: 20230513
  2. GABAPENTIN [Concomitant]
     Active Substance: GABAPENTIN
  3. CLARITIN [Concomitant]
     Active Substance: LORATADINE
  4. XHANCE [Concomitant]
     Active Substance: FLUTICASONE PROPIONATE
  5. SYMBICORT [Concomitant]
     Active Substance: BUDESONIDE\FORMOTEROL FUMARATE DIHYDRATE
  6. AMLODIPINE BESYLATE [Concomitant]
     Active Substance: AMLODIPINE BESYLATE
  7. CLONIDINE HYDROCHLORIDE [Concomitant]
     Active Substance: CLONIDINE HYDROCHLORIDE
  8. PEPCID [Concomitant]
     Active Substance: FAMOTIDINE
  9. VITAMINS NOS [Concomitant]
     Active Substance: VITAMINS

REACTIONS (4)
  - Limb crushing injury [Unknown]
  - Limb traumatic amputation [Unknown]
  - Eye pain [Recovered/Resolved]
  - External ear pain [Recovered/Resolved]

NARRATIVE: CASE EVENT DATE: 20230513
